FAERS Safety Report 8059368-X (Version None)
Quarter: 2012Q1

REPORT INFORMATION
  Report Type: 
  Country: None (occurrence: None)
  Receive Date: 20120120
  Receipt Date: 20120120
  Transmission Date: 20120608
  Serious: Yes (Other)
  Sender: FDA-Public Use
  Company Number: None

PATIENT
  Sex: Female
  Weight: 63.1 kg

DRUGS (1)
  1. MULTIHANCE [Suspect]
     Dosage: 13ML

REACTIONS (6)
  - HYPOAESTHESIA ORAL [None]
  - DIZZINESS [None]
  - SWOLLEN TONGUE [None]
  - PALPITATIONS [None]
  - NAUSEA [None]
  - HYPOTENSION [None]
